FAERS Safety Report 7964267 (Version 13)
Quarter: 2013Q1

REPORT INFORMATION
  Report Type: Spontaneous
  Country: US (occurrence: US)
  Receive Date: 20110527
  Receipt Date: 20130319
  Transmission Date: 20140127
  Serious: Yes (Hospitalization, Other)
  Sender: FDA-Public Use
  Company Number: US-ALLERGAN-1106983US

PATIENT
  Age: 25 Year
  Sex: Male

DRUGS (3)
  1. BOTOX? [Suspect]
     Indication: DYSTONIA
     Dosage: 300 UNITS, SINGLE
     Route: 030
     Dates: start: 20030618, end: 20030618
  2. VALIUM                             /00017001/ [Concomitant]
     Indication: PRODUCT USED FOR UNKNOWN INDICATION
  3. CLORAZEPATE [Concomitant]
     Indication: PRODUCT USED FOR UNKNOWN INDICATION

REACTIONS (12)
  - Stridor [Recovering/Resolving]
  - Respiratory distress [Recovering/Resolving]
  - Hypoxia [Recovering/Resolving]
  - Secretion discharge [Recovering/Resolving]
  - Livedo reticularis [Recovering/Resolving]
  - Failure to thrive [Unknown]
  - Pyrexia [Recovering/Resolving]
  - Dyspnoea [Recovering/Resolving]
  - Pyrexia [Recovering/Resolving]
  - Respiratory distress [Recovered/Resolved]
  - Dysphagia [Recovering/Resolving]
  - Respiratory distress [Recovering/Resolving]
